FAERS Safety Report 6636733-6 (Version None)
Quarter: 2010Q1

REPORT INFORMATION
  Report Type: 
  Country: None (occurrence: None)
  Receive Date: 20100316
  Receipt Date: 20100308
  Transmission Date: 20100710
  Serious: Yes (Hospitalization)
  Sender: FDA-Public Use
  Company Number: D0066745A

PATIENT
  Sex: Male

DRUGS (2)
  1. TWINRIX ADULT [Suspect]
     Indication: PROPHYLAXIS
     Route: 058
     Dates: start: 20080622, end: 20080622
  2. MALARONE [Suspect]
     Indication: MALARIA PROPHYLAXIS
     Route: 048
     Dates: start: 20080623, end: 20080712

REACTIONS (9)
  - BLEPHARITIS [None]
  - BLISTER [None]
  - CHLAMYDIA TEST POSITIVE [None]
  - GENITAL EROSION [None]
  - ORAL MUCOSA EROSION [None]
  - PAIN IN EXTREMITY [None]
  - PRURITUS [None]
  - RASH MACULAR [None]
  - STEVENS-JOHNSON SYNDROME [None]
